FAERS Safety Report 4355681-8 (Version None)
Quarter: 2004Q2

REPORT INFORMATION
  Report Type: 
  Country: None (occurrence: None)
  Receive Date: 20040507
  Receipt Date: 20040430
  Transmission Date: 20050107
  Serious: Yes (Hospitalization, Other)
  Sender: FDA-Public Use
  Company Number: 2004043000616

PATIENT
  Age: 41 Year
  Sex: Female

DRUGS (1)
  1. MONISTAT 1 COMBINATION PACK [Suspect]
     Indication: FUNGAL INFECTION
     Dosage: 1200 MG, 1, VAGINAL
     Route: 067
     Dates: start: 20040421, end: 20040421

REACTIONS (7)
  - DISCOMFORT [None]
  - DYSPHAGIA [None]
  - HYPERSENSITIVITY [None]
  - INFLUENZA LIKE ILLNESS [None]
  - PRURITUS [None]
  - STOMATITIS [None]
  - VULVAL OEDEMA [None]
